FAERS Safety Report 5052377-4 (Version None)
Quarter: 2006Q3

REPORT INFORMATION
  Report Type: 
  Country: None (occurrence: None)
  Receive Date: 20060717
  Receipt Date: 20030908
  Transmission Date: 20061208
  Serious: Yes (Hospitalization)
  Sender: FDA-Public Use
  Company Number: 2003AP03222

PATIENT
  Age: 23900 Day
  Sex: Female
  Weight: 45 kg

DRUGS (13)
  1. ANAPEINE [Suspect]
     Indication: EPIDURAL ANAESTHESIA
     Dosage: 2 ML/H, 3 ML/TIME, VIA PCA
     Route: 008
     Dates: start: 20030730, end: 20030829
  2. CARBOCAIN [Concomitant]
     Indication: NERVE BLOCK
     Route: 065
     Dates: start: 20030723
  3. CARBOCAIN [Concomitant]
     Indication: EPIDURAL ANAESTHESIA
     Route: 065
     Dates: start: 20030723
  4. CARBOCAIN [Concomitant]
     Route: 008
     Dates: start: 20030730, end: 20030730
  5. CARBOCAIN [Concomitant]
     Route: 008
     Dates: start: 20030730, end: 20030730
  6. TOFRANIL [Concomitant]
     Route: 048
     Dates: start: 20030723
  7. TOFRANIL [Concomitant]
     Route: 048
     Dates: start: 20030814
  8. AMOBAN [Concomitant]
     Route: 048
     Dates: start: 20030723
  9. MAGNESIUM OXIDE [Concomitant]
     Route: 048
     Dates: start: 20030804
  10. NEUROTROPIN [Concomitant]
     Dosage: 16UT/DAY
     Route: 048
     Dates: start: 20030701
  11. SELBEX [Concomitant]
     Route: 048
     Dates: start: 20030808
  12. LOXONIN [Concomitant]
     Route: 048
     Dates: start: 20030701
  13. MUCOSTA [Concomitant]
     Route: 048
     Dates: start: 20030701, end: 20030807

REACTIONS (7)
  - ALANINE AMINOTRANSFERASE INCREASED [None]
  - ANOREXIA [None]
  - ASPARTATE AMINOTRANSFERASE INCREASED [None]
  - BLOOD ALKALINE PHOSPHATASE INCREASED [None]
  - GAMMA-GLUTAMYLTRANSFERASE INCREASED [None]
  - HEPATIC FUNCTION ABNORMAL [None]
  - LABORATORY TEST ABNORMAL [None]
